FAERS Safety Report 6167406-4 (Version None)
Quarter: 2009Q2

REPORT INFORMATION
  Report Type: 
  Country: None (occurrence: None)
  Receive Date: 20090424
  Receipt Date: 20090318
  Transmission Date: 20091009
  Serious: Yes (Hospitalization)
  Sender: FDA-Public Use
  Company Number: US-JNJFOC-20090404476

PATIENT
  Sex: Female
  Weight: 86.7 kg

DRUGS (5)
  1. ULTRAM [Suspect]
     Route: 048
  2. ULTRAM [Suspect]
     Indication: PAIN
     Route: 048
  3. CHANTIX [Concomitant]
     Indication: SMOKING CESSATION THERAPY
  4. KLONOPIN [Concomitant]
     Indication: CONVULSION
  5. PREDNISONE [Concomitant]
     Indication: CHRONIC OBSTRUCTIVE PULMONARY DISEASE

REACTIONS (1)
  - GROIN ABSCESS [None]
